FAERS Safety Report 8567111 (Version 2)
Quarter: 2013Q2

REPORT INFORMATION
  Report Type: Spontaneous
  Country: GB (occurrence: GB)
  Receive Date: 20120517
  Receipt Date: 20130628
  Transmission Date: 20140414
  Serious: Yes (Death, Hospitalization, Other)
  Sender: FDA-Public Use
  Company Number: GB-UCBSA-057144

PATIENT
  Age: 38 Year
  Sex: Female

DRUGS (7)
  1. CIMZIA [Suspect]
     Indication: RHEUMATOID ARTHRITIS
     Dosage: DOSE: 200 MG
     Route: 058
     Dates: start: 201112, end: 201204
  2. CIMZIA [Suspect]
     Indication: RHEUMATOID ARTHRITIS
     Dosage: LOADING DOSE
     Dates: start: 201201, end: 2012
  3. CO-CODAMOL [Concomitant]
  4. PREDNISOLONE [Concomitant]
     Dates: start: 201102, end: 201204
  5. FOLIC ACID [Concomitant]
  6. LANSOPRAZOLE [Concomitant]
  7. METHOTREXATE [Concomitant]
     Indication: RHEUMATOID ARTHRITIS
     Dates: start: 201102, end: 201204

REACTIONS (8)
  - Septic shock [Fatal]
  - Multi-organ failure [Fatal]
  - Lower respiratory tract infection [Fatal]
  - Oropharyngeal pain [Unknown]
  - White blood cell count increased [Unknown]
  - Malaise [Unknown]
  - Vomiting [Unknown]
  - Syncope [Unknown]
